FAERS Safety Report 8849936 (Version 2)
Quarter: 2013Q2

REPORT INFORMATION
  Report Type: Report from Study
  Country: FR (occurrence: FR)
  Receive Date: 20121019
  Receipt Date: 20130621
  Transmission Date: 20140414
  Serious: Yes (Hospitalization)
  Sender: FDA-Public Use
  Company Number: FR-BAXTER-2012BAX019650

PATIENT
  Age: 66 Year
  Sex: Male
  Weight: 76.9 kg

DRUGS (32)
  1. ENDOXAN 2000 MG, LYOPHILISAT POUR SOLUTION INJECTABLE [Suspect]
     Indication: B-CELL LYMPHOMA
     Route: 065
     Dates: start: 20120222
  2. ENDOXAN 2000 MG, LYOPHILISAT POUR SOLUTION INJECTABLE [Suspect]
     Route: 065
     Dates: start: 20120428
  3. FLUDARABINE PHOSPHATE [Suspect]
     Indication: B-CELL LYMPHOMA
     Route: 065
     Dates: start: 20120222
  4. RITUXIMAB [Suspect]
     Indication: B-CELL LYMPHOMA
     Route: 042
     Dates: start: 20120614
  5. RITUXIMAB [Suspect]
     Route: 042
     Dates: start: 20120422
  6. RITUXIMAB [Suspect]
     Route: 042
     Dates: start: 20120222
  7. APREPITANT [Concomitant]
     Indication: PROPHYLAXIS OF NAUSEA AND VOMITING
     Route: 065
     Dates: start: 20120424
  8. APREPITANT [Concomitant]
     Route: 065
     Dates: start: 20120330, end: 20120331
  9. APREPITANT [Concomitant]
     Route: 065
     Dates: start: 20120329, end: 20120329
  10. FILGRASTIM [Concomitant]
     Indication: PRODUCT USED FOR UNKNOWN INDICATION
     Route: 065
     Dates: start: 20120430, end: 20130430
  11. BACTRIM [Concomitant]
     Indication: INFECTION PROPHYLAXIS
     Route: 065
     Dates: start: 20120222
  12. ESCITALOPRAM OXALATE [Concomitant]
     Indication: DEPRESSION
     Route: 065
     Dates: start: 20120424
  13. ESCITALOPRAM OXALATE [Concomitant]
     Indication: INFECTION PROPHYLAXIS
  14. VALACICLOVIR [Concomitant]
     Indication: INFECTION PROPHYLAXIS
     Route: 065
     Dates: start: 20120222
  15. ARANESP [Concomitant]
     Indication: ANAEMIA
     Route: 065
     Dates: start: 20120222, end: 20120326
  16. ARANESP [Concomitant]
     Indication: INFECTION PROPHYLAXIS
  17. METOPIMAZINE [Concomitant]
     Indication: PROPHYLAXIS OF NAUSEA AND VOMITING
     Route: 065
     Dates: start: 20120328
  18. PEGFILGRASTIM [Concomitant]
     Indication: NEUTROPENIA
     Route: 065
     Dates: start: 20120424, end: 20120612
  19. CORTANCYL [Concomitant]
     Indication: SCIATICA
     Route: 065
     Dates: start: 20120605
  20. DAFALGAN [Concomitant]
     Indication: SCIATICA
     Route: 065
     Dates: start: 20120605
  21. OMEPRAZOLE [Concomitant]
     Indication: GASTROOESOPHAGEAL REFLUX PROPHYLAXIS
     Route: 065
     Dates: start: 20120605
  22. NEORECORMON [Concomitant]
     Indication: ANAEMIA
     Route: 065
     Dates: start: 20120327
  23. HYDROCORTISONE [Concomitant]
     Indication: PRODUCT USED FOR UNKNOWN INDICATION
     Route: 065
     Dates: start: 20120222, end: 20120222
  24. ONDANSETRON [Concomitant]
     Indication: PROPHYLAXIS OF NAUSEA AND VOMITING
     Route: 065
     Dates: start: 20120222, end: 20120226
  25. FILGRASTIM [Concomitant]
     Indication: PRODUCT USED FOR UNKNOWN INDICATION
     Dosage: 30 MU
     Route: 065
     Dates: start: 20120613
  26. DEXCHLORPHENIRAMINE MALEATE [Concomitant]
     Indication: PRODUCT USED FOR UNKNOWN INDICATION
     Route: 065
     Dates: start: 20120222
  27. PARACETAMOL [Concomitant]
     Indication: PRODUCT USED FOR UNKNOWN INDICATION
     Route: 065
     Dates: start: 20120222
  28. PARACETAMOL [Concomitant]
     Dosage: UPON REQUEST
     Route: 065
     Dates: start: 20120424
  29. RACECADOTRIL [Concomitant]
     Indication: DIARRHOEA
     Route: 065
     Dates: start: 201212, end: 20121213
  30. BICARBONATE MOUTH WASH [Concomitant]
     Indication: PRODUCT USED FOR UNKNOWN INDICATION
     Route: 065
  31. PREDNISONE [Concomitant]
     Indication: PRODUCT USED FOR UNKNOWN INDICATION
     Route: 065
  32. FLAGYL [Concomitant]
     Indication: PRODUCT USED FOR UNKNOWN INDICATION
     Route: 065
     Dates: start: 20120510, end: 20120521

REACTIONS (2)
  - Tooth avulsion [Recovered/Resolved]
  - Tooth infection [Recovered/Resolved]
